FAERS Safety Report 20552600 (Version 1)
Quarter: 2022Q1

REPORT INFORMATION
  Report Type: Spontaneous
  Country: US (occurrence: None)
  Receive Date: 20220303
  Receipt Date: 20220303
  Transmission Date: 20220423
  Serious: Yes (Hospitalization)
  Sender: FDA-Public Use
  Company Number: None

PATIENT
  Age: 86 Year
  Sex: Male
  Weight: 65.7 kg

DRUGS (1)
  1. EVUSHELD [Suspect]
     Active Substance: CILGAVIMAB\TIXAGEVIMAB
     Indication: Immunodeficiency
     Dosage: FREQUENCY : ONCE;?
     Route: 030
     Dates: start: 20220207, end: 20220207

REACTIONS (3)
  - Chest pain [None]
  - Troponin increased [None]
  - Oxygen saturation decreased [None]

NARRATIVE: CASE EVENT DATE: 20220214
